FAERS Safety Report 11795467 (Version 3)
Quarter: 2018Q2

REPORT INFORMATION
  Report Type: Spontaneous
  Country: US (occurrence: US)
  Receive Date: 20151202
  Receipt Date: 20180507
  Transmission Date: 20180711
  Serious: Yes (Hospitalization, Other)
  Sender: FDA-Public Use
  Company Number: US-DSJP-DSU-2015-129560

PATIENT

DRUGS (9)
  1. MEVACOR [Concomitant]
     Active Substance: LOVASTATIN
     Indication: PRODUCT USED FOR UNKNOWN INDICATION
     Dosage: 40 MG, BID
     Dates: start: 201004
  2. BENICAR [Suspect]
     Active Substance: OLMESARTAN MEDOXOMIL
     Indication: PRODUCT USED FOR UNKNOWN INDICATION
     Dosage: UNK
     Route: 048
     Dates: start: 200612
  3. LOVASTATIN. [Concomitant]
     Active Substance: LOVASTATIN
     Indication: PRODUCT USED FOR UNKNOWN INDICATION
     Dosage: UNK
  4. ASPIRIN                            /00002701/ [Concomitant]
     Active Substance: ASPIRIN
     Indication: PRODUCT USED FOR UNKNOWN INDICATION
     Dosage: 81 MG, QD
     Dates: start: 201005
  5. HYDROCODONE BITARTRATE AND ACETAMINOPHEN [Concomitant]
     Active Substance: ACETAMINOPHEN\HYDROCODONE BITARTRATE
     Indication: PRODUCT USED FOR UNKNOWN INDICATION
     Dosage: 325 MG, TID
     Dates: start: 201311, end: 201508
  6. HYDROCODONE BITARTRATE AND ACETAMINOPHEN [Concomitant]
     Active Substance: ACETAMINOPHEN\HYDROCODONE BITARTRATE
     Dosage: 500 MG, QD
     Dates: start: 201311, end: 201508
  7. RANITIDINE. [Concomitant]
     Active Substance: RANITIDINE
     Indication: PRODUCT USED FOR UNKNOWN INDICATION
     Dosage: UNK
  8. BENICAR HCT [Suspect]
     Active Substance: HYDROCHLOROTHIAZIDE\OLMESARTAN MEDOXOMIL
     Indication: HYPERTENSION
     Dosage: 40/25 MG, UNK
     Dates: start: 200612, end: 201508
  9. NAPROXEN. [Concomitant]
     Active Substance: NAPROXEN
     Indication: PRODUCT USED FOR UNKNOWN INDICATION
     Dosage: 500 MG, UNK
     Dates: start: 201004

REACTIONS (22)
  - Pneumobilia [Unknown]
  - Atrial fibrillation [Unknown]
  - Sepsis [Recovered/Resolved]
  - Headache [Unknown]
  - Haemorrhoids [Not Recovered/Not Resolved]
  - Diverticulitis [Unknown]
  - Large intestine polyp [Unknown]
  - Respiratory failure [Recovered/Resolved]
  - Cardiac failure congestive [Unknown]
  - Sprue-like enteropathy [Unknown]
  - Rectal polyp [Unknown]
  - Intestinal obstruction [Unknown]
  - Jejunectomy [Unknown]
  - Pneumonia [Unknown]
  - Dyspepsia [Unknown]
  - Acute kidney injury [Recovering/Resolving]
  - Gallbladder disorder [Unknown]
  - Gastric ulcer [Unknown]
  - Surgical procedure repeated [Unknown]
  - Diverticulum intestinal [Unknown]
  - Varices oesophageal [Unknown]
  - Gallstone ileus [Unknown]

NARRATIVE: CASE EVENT DATE: 2013
